FAERS Safety Report 5219033-0 (Version None)
Quarter: 2007Q1

REPORT INFORMATION
  Report Type: 
  Country: None (occurrence: None)
  Receive Date: 20070125
  Receipt Date: 20070118
  Transmission Date: 20070707
  Serious: Yes (Hospitalization, Disabling, Other)
  Sender: FDA-Public Use
  Company Number: US-ELI_LILLY_AND_COMPANY-US200701003804

PATIENT
  Age: 55 Year
  Sex: Male

DRUGS (8)
  1. HUMULIN L [Suspect]
     Indication: DIABETES MELLITUS
     Dosage: 45 UNITS IN AM, 18 UNITS IN PM
     Dates: start: 19930101, end: 20050101
  2. HUMULIN L [Suspect]
     Dosage: 18 U, EACH EVENING
     Dates: start: 19930101, end: 20050101
  3. HUMULIN L [Suspect]
     Dosage: UNK, UNKNOWN
     Dates: start: 20050101, end: 20061201
  4. HUMULIN R [Suspect]
     Indication: DIABETES MELLITUS
     Dosage: 22 UNITS IN AM
     Dates: start: 19930101, end: 20061201
  5. HUMULIN R [Suspect]
     Dosage: 30 U, EACH MORNING
     Dates: start: 20061201
  6. HUMULIN 70/30 [Suspect]
     Indication: DIABETES MELLITUS
     Dosage: UNK, UNKNOWN
     Dates: start: 20050101, end: 20050101
  7. HUMULIN N [Suspect]
     Indication: DIABETES MELLITUS
     Dosage: 50 U, EACH MORNING
     Dates: start: 20061201
  8. HUMULIN N [Suspect]
     Dosage: 25 U, EACH EVENING
     Dates: start: 20061201

REACTIONS (20)
  - ANGER [None]
  - ARTHRITIS [None]
  - BLOOD GLUCOSE DECREASED [None]
  - BLOOD GLUCOSE FLUCTUATION [None]
  - BLOOD GLUCOSE INCREASED [None]
  - BONE EROSION [None]
  - CARDIAC DISORDER [None]
  - DRUG INEFFECTIVE [None]
  - FALL [None]
  - INCISION SITE COMPLICATION [None]
  - INCISIONAL DRAINAGE [None]
  - LOSS OF CONSCIOUSNESS [None]
  - LOWER LIMB FRACTURE [None]
  - MUSCULOSKELETAL DISCOMFORT [None]
  - OEDEMA PERIPHERAL [None]
  - OSTEOARTHRITIS [None]
  - OSTEOMYELITIS [None]
  - ROTATOR CUFF SYNDROME [None]
  - STAPHYLOCOCCAL INFECTION [None]
  - WOUND INFECTION STAPHYLOCOCCAL [None]
